FAERS Safety Report 13816647 (Version 1)
Quarter: 2017Q3

REPORT INFORMATION
  Report Type: Spontaneous
  Country: US (occurrence: US)
  Receive Date: 20170731
  Receipt Date: 20170731
  Transmission Date: 20171127
  Serious: No
  Sender: FDA-Public Use
  Company Number: US-JNJFOC-20170522437

PATIENT
  Age: 68 Year
  Sex: Female

DRUGS (2)
  1. ZYRTEC [Suspect]
     Active Substance: CETIRIZINE HYDROCHLORIDE
     Indication: BLISTER
     Dosage: 2 TABLETS IN LESS THAN 24 HOURS
     Route: 065
     Dates: start: 20170519
  2. ZYRTEC [Suspect]
     Active Substance: CETIRIZINE HYDROCHLORIDE
     Indication: RASH PRURITIC
     Dosage: 2 TABLETS IN LESS THAN 24 HOURS
     Route: 065
     Dates: start: 20170519

REACTIONS (4)
  - Therapeutic response unexpected [Unknown]
  - Drug prescribing error [Unknown]
  - Off label use [Unknown]
  - Product use in unapproved indication [Unknown]
